FAERS Safety Report 17912000 (Version 1)
Quarter: 2020Q2

REPORT INFORMATION
  Report Type: Spontaneous
  Country: US (occurrence: US)
  Receive Date: 20200617
  Receipt Date: 20200617
  Transmission Date: 20200714
  Serious: No
  Sender: FDA-Public Use
  Company Number: None

PATIENT

DRUGS (1)
  1. NYMALIZE [Suspect]
     Active Substance: NIMODIPINE

REACTIONS (2)
  - Drug administered in wrong device [None]
  - Device dispensing error [None]
